FAERS Safety Report 14661914 (Version 2)
Quarter: 2018Q2

REPORT INFORMATION
  Report Type: Spontaneous
  Country: JP (occurrence: JP)
  Receive Date: 20180320
  Receipt Date: 20180413
  Transmission Date: 20180711
  Serious: Yes (Other)
  Sender: FDA-Public Use
  Company Number: JP-AMGEN-JPNSP2018038512

PATIENT
  Age: 7 Decade
  Sex: Female

DRUGS (7)
  1. OXALIPLATIN. [Suspect]
     Active Substance: OXALIPLATIN
     Indication: COLON CANCER
     Dosage: UNK
     Route: 041
     Dates: start: 2015
  2. CALCIUM LEVOFOLINATE [Concomitant]
     Active Substance: LEVOLEUCOVORIN CALCIUM
     Indication: COLON CANCER
     Dosage: UNK
     Route: 041
     Dates: start: 2015
  3. VECTIBIX [Suspect]
     Active Substance: PANITUMUMAB
     Dosage: 6 MG/KG, Q2WEEKS
     Route: 041
  4. VECTIBIX [Suspect]
     Active Substance: PANITUMUMAB
     Dosage: 6 MG/KG, Q2WEEKS
     Route: 041
  5. VECTIBIX [Suspect]
     Active Substance: PANITUMUMAB
     Indication: COLON CANCER
     Dosage: 6 MG/KG, Q2WEEKS
     Route: 041
     Dates: start: 2015
  6. FLUOROURACIL. [Concomitant]
     Active Substance: FLUOROURACIL
     Indication: COLON CANCER
     Dosage: UNK
     Route: 042
     Dates: start: 2015
  7. FLUOROURACIL. [Concomitant]
     Active Substance: FLUOROURACIL
     Dosage: UNK
     Route: 042

REACTIONS (3)
  - Dermatitis acneiform [Recovering/Resolving]
  - Neurotoxicity [Recovering/Resolving]
  - Dry skin [Recovering/Resolving]

NARRATIVE: CASE EVENT DATE: 2018
